FAERS Safety Report 6237857-8 (Version None)
Quarter: 2009Q2

REPORT INFORMATION
  Report Type: 
  Country: None (occurrence: None)
  Receive Date: 20090617
  Receipt Date: 20090602
  Transmission Date: 20091009
  Serious: Yes (Other)
  Sender: FDA-Public Use
  Company Number: 2009RR-24414

PATIENT
  Age: 83 Year
  Sex: Male

DRUGS (7)
  1. GABAPENTIN [Suspect]
     Indication: NEURALGIA
  2. CARBIDOPA AND LEVODOPA [Concomitant]
  3. AMANTADIN (AMANTADIN) [Concomitant]
  4. KETIAPIN (KETIAPIN) [Concomitant]
  5. SERTRALIN (SERTRALIN) [Concomitant]
  6. WARFARIN SODIUM [Concomitant]
  7. PROPAFENON HCL (PROPAFENON HCL) [Concomitant]

REACTIONS (3)
  - BALLISMUS [None]
  - DYSSTASIA [None]
  - RIB FRACTURE [None]
